FAERS Safety Report 4708596-7 (Version None)
Quarter: 2005Q3

REPORT INFORMATION
  Report Type: 
  Country: None (occurrence: None)
  Receive Date: 20050706
  Receipt Date: 20050623
  Transmission Date: 20060218
  Serious: Yes (Hospitalization)
  Sender: FDA-Public Use
  Company Number: 2005092375

PATIENT
  Sex: Female
  Weight: 92.0802 kg

DRUGS (4)
  1. BEXTRA [Suspect]
     Indication: INFLAMMATION
     Dosage: 20 MG (20 MG, 1 IN 1 D) ORAL
     Route: 048
     Dates: start: 20000101
  2. SYNTHROID [Concomitant]
  3. MORPHINE [Concomitant]
  4. CODEINE [Concomitant]

REACTIONS (6)
  - ARTHRITIS [None]
  - BACK PAIN [None]
  - CONDITION AGGRAVATED [None]
  - PAIN [None]
  - POST PROCEDURAL COMPLICATION [None]
  - WEIGHT DECREASED [None]
